FAERS Safety Report 14287938 (Version 2)
Quarter: 2018Q1

REPORT INFORMATION
  Report Type: Spontaneous
  Country: JP (occurrence: JP)
  Receive Date: 20171214
  Receipt Date: 20180119
  Transmission Date: 20180509
  Serious: Yes (Disabling)
  Sender: FDA-Public Use
  Company Number: JP-DSJP-DSJ-2017-157374

PATIENT

DRUGS (7)
  1. DOXAZOSIN [Concomitant]
     Active Substance: DOXAZOSIN\DOXAZOSIN MESYLATE
     Dosage: 1 MG, BID
     Route: 048
  2. LIVALO [Concomitant]
     Active Substance: PITAVASTATIN CALCIUM
     Dosage: 2 MG, QD
     Route: 048
  3. DIGOXIN. [Concomitant]
     Active Substance: DIGOXIN
     Dosage: UNK
     Route: 048
  4. CO DIO COMBINATION [Concomitant]
     Active Substance: HYDROCHLOROTHIAZIDE\VALSARTAN
     Dosage: UNK, QD
     Route: 048
  5. LIXIANA TABLETS 60MG [Suspect]
     Active Substance: EDOXABAN TOSYLATE
     Indication: ATRIAL FIBRILLATION
     Dosage: 30 MG, QD
     Route: 048
     Dates: start: 20160606, end: 20161128
  6. AMLODIPINE                         /00972402/ [Concomitant]
     Active Substance: AMLODIPINE BESYLATE
     Dosage: UNK
     Route: 048
  7. MAINTATE [Concomitant]
     Active Substance: BISOPROLOL FUMARATE
     Dosage: UNK
     Route: 048

REACTIONS (1)
  - Cerebral infarction [Recovered/Resolved with Sequelae]

NARRATIVE: CASE EVENT DATE: 20161128
